FAERS Safety Report 8854066 (Version 1)
Quarter: 2012Q4

REPORT INFORMATION
  Report Type: Spontaneous
  Country: US (occurrence: None)
  Receive Date: 20121019
  Receipt Date: 20121019
  Transmission Date: 20130627
  Serious: Yes (Hospitalization)
  Sender: FDA-Public Use
  Company Number: None

PATIENT
  Age: 33 Year
  Sex: Female
  Weight: 61.24 kg

DRUGS (1)
  1. MIRENA [Suspect]

REACTIONS (7)
  - Device dislocation [None]
  - Menometrorrhagia [None]
  - Abdominal pain [None]
  - Activities of daily living impaired [None]
  - Inadequate analgesia [None]
  - Asthenia [None]
  - Partner stress [None]
